FAERS Safety Report 9831659 (Version 1)
Quarter: 2014Q1

REPORT INFORMATION
  Report Type: Spontaneous
  Country: US (occurrence: US)
  Receive Date: 20140121
  Receipt Date: 20140121
  Transmission Date: 20141002
  Serious: Yes (Other)
  Sender: FDA-Public Use
  Company Number: US-PFIZER INC-2014016040

PATIENT
  Sex: Female

DRUGS (8)
  1. LYRICA [Suspect]
     Indication: FIBROMYALGIA
     Dosage: 75 MG, UNK
  2. LYRICA [Interacting]
     Dosage: 150 MG, UNK
  3. LYRICA [Interacting]
     Dosage: 200 MG, UNK
  4. LYRICA [Interacting]
     Dosage: 75 MG, UNK
     Dates: start: 20140112
  5. SIMVASTATIN [Interacting]
     Indication: BLOOD CHOLESTEROL ABNORMAL
     Dosage: UNK
  6. WELLBUTRIN [Interacting]
     Dosage: UNK
  7. OXYCONTIN [Interacting]
     Dosage: 80MG AND 40MG IN MORNING, 80MG IN NIGHT (3X/DAY)
     Dates: start: 2011
  8. SOMA [Interacting]
     Dosage: 350 MG, AS NEEDED

REACTIONS (8)
  - Drug interaction [Unknown]
  - Gait disturbance [Unknown]
  - Activities of daily living impaired [Unknown]
  - Eye disorder [Unknown]
  - Feeling drunk [Unknown]
  - Incoherent [Unknown]
  - Feeling abnormal [Unknown]
  - Drug effect decreased [Unknown]
